FAERS Safety Report 9146610 (Version 1)
Quarter: 2013Q1

REPORT INFORMATION
  Report Type: Spontaneous
  Country: JP (occurrence: JP)
  Receive Date: 20130307
  Receipt Date: 20130307
  Transmission Date: 20140127
  Serious: Yes (Other)
  Sender: FDA-Public Use
  Company Number: JP-ASTRAZENECA-2012SE94164

PATIENT
  Age: 77 Year
  Sex: Male

DRUGS (4)
  1. CRESTOR [Suspect]
     Route: 048
     Dates: start: 20100929, end: 20110215
  2. CRESTOR [Suspect]
     Route: 048
     Dates: start: 20110216, end: 201301
  3. ZETIA [Concomitant]
     Dosage: DOSE UNKNOWN
     Route: 048
     Dates: start: 20110516, end: 201301
  4. TAKEPRON [Concomitant]
     Dosage: DOSE UNKNOWN
     Route: 065

REACTIONS (3)
  - Myelodysplastic syndrome [Unknown]
  - Platelet count decreased [Recovered/Resolved]
  - White blood cell count decreased [Unknown]
